FAERS Safety Report 7382255-7 (Version None)
Quarter: 2011Q1

REPORT INFORMATION
  Report Type: 
  Country: None (occurrence: None)
  Receive Date: 20110329
  Receipt Date: 20110316
  Transmission Date: 20110831
  Serious: Yes (Other)
  Sender: FDA-Public Use
  Company Number: DE-GENENTECH-314585

PATIENT
  Sex: Female
  Weight: 59 kg

DRUGS (6)
  1. MABTHERA [Suspect]
     Indication: PRODUCT USED FOR UNKNOWN INDICATION
     Dosage: 375 MG/M2, UNK
     Route: 042
     Dates: start: 20070801
  2. PREDNISONE [Concomitant]
     Indication: NON-HODGKIN'S LYMPHOMA
  3. BENDAMUSTINE [Concomitant]
     Indication: NON-HODGKIN'S LYMPHOMA
  4. VINCRISTINE [Concomitant]
     Indication: NON-HODGKIN'S LYMPHOMA
  5. DOXORUBICIN [Concomitant]
     Indication: NON-HODGKIN'S LYMPHOMA
  6. CYCLOPHOSPHAMIDE [Concomitant]
     Indication: NON-HODGKIN'S LYMPHOMA

REACTIONS (3)
  - GLIAL SCAR [None]
  - JC VIRUS INFECTION [None]
  - PARALYSIS [None]
